FAERS Safety Report 9744877 (Version 2)
Quarter: 2013Q4

REPORT INFORMATION
  Report Type: Report from Study
  Country: DE (occurrence: DE)
  Receive Date: 20131211
  Receipt Date: 20131211
  Transmission Date: 20140711
  Serious: Yes (Death, Other)
  Sender: FDA-Public Use
  Company Number: DE-ROCHE-1301566

PATIENT
  Age: 66 Year
  Sex: Female
  Weight: 50 kg

DRUGS (5)
  1. BEVACIZUMAB [Suspect]
     Indication: COLORECTAL CANCER METASTATIC
     Dosage: DOSE: 5 MG/KG
     Route: 042
     Dates: start: 20121004, end: 20130123
  2. EMEND [Concomitant]
     Indication: VOMITING
     Route: 065
  3. EMEND [Concomitant]
     Indication: NAUSEA
  4. PANTOPRAZOL [Concomitant]
     Indication: DYSPEPSIA
     Route: 048
  5. PANTOPRAZOL [Concomitant]
     Indication: GASTRIC PERFORATION

REACTIONS (6)
  - Malignant neoplasm progression [Fatal]
  - Cholestasis [Unknown]
  - Jaundice [Unknown]
  - Renal failure acute [Unknown]
  - Pain [Unknown]
  - Pyrexia [Unknown]
